FAERS Safety Report 6222716-7 (Version None)
Quarter: 2009Q2

REPORT INFORMATION
  Report Type: 
  Country: None (occurrence: None)
  Receive Date: 20090609
  Receipt Date: 20090528
  Transmission Date: 20091009
  Serious: Yes (Other)
  Sender: FDA-Public Use
  Company Number: CHNY2009GB02135

PATIENT
  Age: 64 Year
  Sex: Male

DRUGS (10)
  1. OTRIVIN [Suspect]
     Indication: NASAL CONGESTION
     Dosage: 2 SPRAYS IN EACH NOSTRIL 3 TIMES A DAY, NASAL; 2 SPRAYS IN EACH NOSTRIL 4 TIMES A DAY, NASAL
     Route: 045
     Dates: start: 20090101
  2. LISINOPRIL [Concomitant]
  3. METFORMIN HCL [Concomitant]
  4. ATENOLOL [Concomitant]
  5. DOXAZOSIN MESYLATE [Concomitant]
  6. HUMULIN M3 (INSULIN HUMAN) [Concomitant]
  7. FUROSEMIDE [Concomitant]
  8. CODEINE PHOSPHATE AND ACETAMINOPHEN [Concomitant]
  9. AMLODIPINE [Concomitant]
  10. GLICLAZIDE (GLICLAZIDE) [Concomitant]

REACTIONS (3)
  - DRUG DEPENDENCE [None]
  - INTENTIONAL DRUG MISUSE [None]
  - NO ADVERSE EVENT [None]
